FAERS Safety Report 18810453 (Version 1)
Quarter: 2021Q1

REPORT INFORMATION
  Report Type: Spontaneous
  Country: US (occurrence: US)
  Receive Date: 20210129
  Receipt Date: 20210129
  Transmission Date: 20210419
  Serious: No
  Sender: FDA-Public Use
  Company Number: US-PFIZER INC-2021073691

PATIENT
  Age: 73 Year
  Sex: Male

DRUGS (3)
  1. AZITHROMYCIN ANHYDROUS. [Suspect]
     Active Substance: AZITHROMYCIN ANHYDROUS
     Dosage: 250MG, TAKE TWO TABLETS BY MOUTH AND THEN ONE TABLET BY MOUTH FOR FOUR DAYS
     Route: 048
     Dates: start: 20210104, end: 20210108
  2. AMOXICILLIN. [Suspect]
     Active Substance: AMOXICILLIN
     Dosage: 125MG TABLET, EVERY 12 HOURS
     Route: 048
     Dates: start: 20210104, end: 20210108
  3. PREDNISONE. [Suspect]
     Active Substance: PREDNISONE
     Dosage: 20MG, THREE PILLS DAILY FOR THREE DAYS THEN TWO PILLS DAILY FOR FOUR DAYS
     Dates: start: 20210104, end: 20210108

REACTIONS (2)
  - Drug hypersensitivity [Unknown]
  - Rash [Unknown]
